FAERS Safety Report 5836325-2 (Version None)
Quarter: 2008Q3

REPORT INFORMATION
  Report Type: 
  Country: None (occurrence: None)
  Receive Date: 20080807
  Receipt Date: 20080728
  Transmission Date: 20090109
  Serious: Yes (Hospitalization)
  Sender: FDA-Public Use
  Company Number: US-JNJFOC-20080706964

PATIENT
  Sex: Female
  Weight: 54.43 kg

DRUGS (17)
  1. DURAGESIC-100 [Suspect]
     Indication: DRUG USE FOR UNKNOWN INDICATION
     Route: 062
  2. FENTANYL TRANSDERMAL SYSTEM [Suspect]
     Indication: PAIN
     Route: 062
  3. FENTANYL TRANSDERMAL SYSTEM [Suspect]
     Indication: PAIN
     Route: 062
  4. RELPAX [Concomitant]
     Indication: MIGRAINE
     Route: 048
  5. BUSPAR [Concomitant]
     Indication: ANXIETY
     Route: 048
  6. SULAR [Concomitant]
     Indication: RAYNAUD'S PHENOMENON
     Route: 048
  7. TOPAMAX [Concomitant]
     Indication: MIGRAINE
     Route: 048
  8. FLEXERIL [Concomitant]
     Indication: FIBROMYALGIA
     Dosage: 10-20 MG, 1-2 TABLETS AS NEEDED
     Route: 048
  9. NEURONTIN [Concomitant]
     Indication: FIBROMYALGIA
     Dosage: TWO 600 MG TABLETS
     Route: 048
  10. PROVIGIL [Concomitant]
     Indication: FIBROMYALGIA
     Dosage: TWO 200 MG TABLETS
     Route: 048
  11. ENBREL [Concomitant]
     Indication: ARTHRITIS
     Route: 058
  12. CELEBREX [Concomitant]
     Indication: ARTHRITIS
     Route: 048
  13. TRAZODONE HCL [Concomitant]
     Indication: FIBROMYALGIA
     Route: 048
  14. TRAZODONE HCL [Concomitant]
     Indication: ARTHRITIS
     Route: 048
  15. TRAZODONE HCL [Concomitant]
     Indication: MIGRAINE
     Route: 048
  16. CLONAZEPAM [Concomitant]
     Dosage: 0.5-1 MG 1-2 TABLETS AS NEEDED
     Route: 048
  17. NORCO [Concomitant]
     Indication: PAIN
     Dosage: 10/ 325 MG 1-2 TABLETS AS NEEDED
     Route: 048

REACTIONS (11)
  - ANXIETY [None]
  - APPLICATION SITE ANAESTHESIA [None]
  - ARTHRALGIA [None]
  - BODY HEIGHT DECREASED [None]
  - COLITIS [None]
  - DEPRESSION [None]
  - DRUG ADMINISTERED AT INAPPROPRIATE SITE [None]
  - GASTROOESOPHAGEAL REFLUX DISEASE [None]
  - INCORRECT DRUG ADMINISTRATION DURATION [None]
  - OSTEOPOROSIS [None]
  - RESTLESS LEGS SYNDROME [None]
